FAERS Safety Report 8539641-9 (Version None)
Quarter: 2012Q3

REPORT INFORMATION
  Report Type: 
  Country: None (occurrence: None)
  Receive Date: 20120726
  Receipt Date: 20120719
  Transmission Date: 20120928
  Serious: Yes (Hospitalization)
  Sender: FDA-Public Use
  Company Number: PHHO2011JP020152

PATIENT
  Sex: Female
  Weight: 41.3 kg

DRUGS (19)
  1. GILENYA [Suspect]
     Dosage: 0.5 MG, QD
     Route: 048
     Dates: start: 20080724, end: 20111226
  2. DEPAS [Concomitant]
     Indication: INSOMNIA
     Dosage: 1.5 MG, UNK
     Route: 048
     Dates: start: 20101011, end: 20111207
  3. VITAMIN B12 [Concomitant]
     Dosage: 1500 UG, UNK
     Route: 048
     Dates: start: 20120630
  4. VESICARE [Concomitant]
     Dosage: 10 MG, UNK
     Route: 048
     Dates: start: 20120630
  5. GASMOTIN [Concomitant]
     Dosage: 15 MG, UNK
     Route: 048
     Dates: start: 20120630
  6. SIMVASTATIN [Concomitant]
     Indication: PROPHYLAXIS
     Dosage: 10 MG, UNK
     Route: 048
     Dates: start: 20090105, end: 20111226
  7. MUCOSTA [Concomitant]
     Indication: PROPHYLAXIS AGAINST GASTROINTESTINAL ULCER
     Dosage: 300 MG, UNK
     Route: 048
     Dates: start: 20080828, end: 20111226
  8. LOXONIN [Concomitant]
     Indication: HEADACHE
     Dosage: 180 MG, UNK
     Route: 048
     Dates: start: 20080828, end: 20111226
  9. MOTILIUM [Concomitant]
     Indication: NAUSEA
     Dosage: 30 MG, UNK
     Route: 048
     Dates: start: 20110929, end: 20111226
  10. ALLEGRA [Concomitant]
     Dosage: 120 MG, UNK
     Route: 048
     Dates: start: 20120603
  11. CATLEP [Concomitant]
     Indication: BACK PAIN
     Dosage: 3 DF, UNK
     Route: 062
     Dates: start: 20080710, end: 20111226
  12. MAGMITT KENEI [Concomitant]
     Indication: CONSTIPATION
     Dosage: 990 MG, UNK
     Route: 048
     Dates: start: 20110701, end: 20111214
  13. LANSOPRAZOLE [Concomitant]
     Indication: GASTRIC ULCER
     Dosage: 30 MG, UNK
     Route: 048
     Dates: start: 20110929, end: 20111207
  14. TIZANIDINE HYDROCHLORIDE [Concomitant]
     Indication: MULTIPLE SCLEROSIS
     Dosage: 3 MG, UNK
     Route: 048
     Dates: start: 20111011, end: 20111207
  15. AMOBAN [Concomitant]
     Indication: INSOMNIA
     Dosage: 7.5 MG, UNK
     Route: 048
     Dates: start: 20100701, end: 20111215
  16. MYONAL [Concomitant]
     Indication: INSOMNIA
     Dosage: 1.5 MG, UNK
     Route: 048
     Dates: start: 20101011, end: 20111207
  17. LENDORMIN [Concomitant]
     Dosage: 0.25 MG, UNK
     Route: 048
     Dates: start: 20120630
  18. URITOS [Concomitant]
     Dosage: 0.1 MG, UNK
     Route: 048
     Dates: start: 20080710, end: 20111214
  19. BACTRIM [Concomitant]
     Dosage: 1 DF, UNK
     Route: 048
     Dates: start: 20120630

REACTIONS (1)
  - DIFFUSE LARGE B-CELL LYMPHOMA [None]
